FAERS Safety Report 11228976 (Version 2)
Quarter: 2015Q2

REPORT INFORMATION
  Report Type: Spontaneous
  Country: US (occurrence: US)
  Receive Date: 20150630
  Receipt Date: 20150630
  Transmission Date: 20150821
  Serious: Yes (Hospitalization, Other)
  Sender: FDA-Public Use
  Company Number: US-APOTEX-2015AP010249

PATIENT

DRUGS (5)
  1. TRAZODONE HYDROCHLORIDE. [Suspect]
     Active Substance: TRAZODONE HYDROCHLORIDE
     Indication: FEELING OF RELAXATION
     Dosage: 100 MG, UNK
     Route: 065
     Dates: start: 2013
  2. CLONAZEPAM TABLETS USP [Suspect]
     Active Substance: CLONAZEPAM
     Indication: SLEEP DISORDER
     Dosage: 15 MG, UNK
     Route: 048
  3. NEUPRO [Suspect]
     Active Substance: ROTIGOTINE
     Indication: RESTLESS LEGS SYNDROME
     Dosage: TITRATED FROM 1-3 MG OVER 6 MONTHS
     Route: 065
     Dates: start: 2013
  4. NAMENDA [Suspect]
     Active Substance: MEMANTINE HYDROCHLORIDE
     Indication: MEMORY IMPAIRMENT
     Dosage: 10 MG, QD
     Route: 065
     Dates: start: 2013
  5. NEUPRO [Suspect]
     Active Substance: ROTIGOTINE
     Dosage: 3 MG, DAILY
     Route: 065

REACTIONS (9)
  - Application site swelling [Not Recovered/Not Resolved]
  - Application site scar [Not Recovered/Not Resolved]
  - Skin discolouration [Recovered/Resolved]
  - Pneumonia [Recovered/Resolved]
  - Application site pruritus [Not Recovered/Not Resolved]
  - Tremor [Recovered/Resolved]
  - Application site erythema [Not Recovered/Not Resolved]
  - Loss of consciousness [Recovered/Resolved]
  - Aortic aneurysm [Not Recovered/Not Resolved]

NARRATIVE: CASE EVENT DATE: 2013
